FAERS Safety Report 9189803 (Version 1)
Quarter: 2013Q1

REPORT INFORMATION
  Report Type: Spontaneous
  Country: BR (occurrence: BR)
  Receive Date: 20130326
  Receipt Date: 20130326
  Transmission Date: 20140127
  Serious: Yes (Other)
  Sender: FDA-Public Use
  Company Number: BR-PFIZER INC-2013095704

PATIENT
  Sex: Female

DRUGS (10)
  1. IRINOTECAN HCL [Suspect]
     Dosage: 11180 MG/ SQUARE METERS
  2. FLUOROURACIL [Interacting]
     Dosage: 2400 MG/SQUARE METERS
  3. CALCIUM FOLINATE [Interacting]
     Dosage: 400MG/SQUARE METERS
  4. GABAPENTIN [Interacting]
  5. HYDROCHLOROTHIAZIDE [Interacting]
  6. OXALIPLATIN [Interacting]
     Dosage: 85MG/SQUARE METERS
  7. APREPITANT [Interacting]
  8. CYMBALTA [Interacting]
  9. LOSARTAN [Interacting]
  10. ROSUVASTATIN [Interacting]

REACTIONS (4)
  - Drug interaction [Unknown]
  - Blood alkaline phosphatase increased [Unknown]
  - Transaminases increased [Unknown]
  - Gamma-glutamyltransferase increased [Unknown]
